FAERS Safety Report 24068319 (Version 1)
Quarter: 2024Q3

REPORT INFORMATION
  Report Type: Spontaneous
  Country: SE (occurrence: SE)
  Receive Date: 20240710
  Receipt Date: 20240710
  Transmission Date: 20241017
  Serious: No
  Sender: ROCHE
  Company Number: SE-ROCHE-3562282

PATIENT
  Sex: Female

DRUGS (1)
  1. ROZLYTREK [Suspect]
     Active Substance: ENTRECTINIB
     Indication: Product used for unknown indication
     Route: 065

REACTIONS (6)
  - Pain of skin [Unknown]
  - Pain [Unknown]
  - Abdominal pain upper [Unknown]
  - Dry mouth [Unknown]
  - Hypersensitivity [Unknown]
  - Bone pain [Unknown]
